FAERS Safety Report 8068987-6 (Version None)
Quarter: 2011Q4

REPORT INFORMATION
  Report Type: 
  Country: None (occurrence: None)
  Receive Date: 20111221
  Receipt Date: 20101207
  Transmission Date: 20120403
  Serious: Yes (Death)
  Sender: FDA-Public Use
  Company Number: PHHY2010US77425

PATIENT
  Sex: Male
  Weight: 71 kg

DRUGS (1)
  1. EXJADE [Suspect]
     Dosage: 1000 MG, QD, ORAL
     Route: 048
     Dates: start: 20090101, end: 20101001

REACTIONS (2)
  - NEOPLASM MALIGNANT [None]
  - CHRONIC LYMPHOCYTIC LEUKAEMIA [None]
